FAERS Safety Report 5856881-8 (Version None)
Quarter: 2008Q3

REPORT INFORMATION
  Report Type: 
  Country: None (occurrence: None)
  Receive Date: 20080821
  Receipt Date: 20080807
  Transmission Date: 20090109
  Serious: Yes (Hospitalization)
  Sender: FDA-Public Use
  Company Number: 2008001952

PATIENT
  Age: 67 Year
  Sex: Female
  Weight: 36.4 kg

DRUGS (4)
  1. ERLOTINIB (ERLOTINIB) (TABLET) (ERLOTINIB) [Suspect]
     Indication: LUNG ADENOCARCINOMA
     Dosage: 100 MG, QD, ORAL
     Route: 048
     Dates: start: 20080602, end: 20080703
  2. ZANTAC [Concomitant]
  3. MUCOSTA (REBAMIPIDE) [Concomitant]
  4. LOXONIN (LOXOPROFEN SODIUM) [Concomitant]

REACTIONS (4)
  - ANAEMIA [None]
  - ANOREXIA [None]
  - MALAISE [None]
  - RASH [None]
